FAERS Safety Report 14298230 (Version 1)
Quarter: 2017Q4

REPORT INFORMATION
  Report Type: Spontaneous
  Country: US (occurrence: US)
  Receive Date: 20171215
  Receipt Date: 20171215
  Transmission Date: 20180321
  Serious: No
  Sender: FDA-Public Use
  Company Number: None

PATIENT
  Age: 26 Year
  Sex: Male
  Weight: 70 kg

DRUGS (2)
  1. SILVER SULFADIZINE [Suspect]
     Active Substance: SILVER SULFADIAZINE
  2. AMPHOTERICIN B. [Suspect]
     Active Substance: AMPHOTERICIN B
     Indication: THERMAL BURN
     Route: 061
     Dates: start: 20171110, end: 20171211

REACTIONS (2)
  - Lactic acidosis [None]
  - Product formulation issue [None]

NARRATIVE: CASE EVENT DATE: 20171212
